FAERS Safety Report 6811984-6 (Version None)
Quarter: 2010Q2

REPORT INFORMATION
  Report Type: 
  Country: None (occurrence: None)
  Receive Date: 20100628
  Receipt Date: 20100617
  Transmission Date: 20101027
  Serious: Yes (Hospitalization)
  Sender: FDA-Public Use
  Company Number: 2010-2240

PATIENT
  Age: 48 Year
  Sex: Male

DRUGS (1)
  1. APO-GO AMPOULES (APO-GO) (APOMORPHINE HYDROCHLORIDE) (APOMORPHINE HYDR [Suspect]
     Indication: DRUG USE FOR UNKNOWN INDICATION
     Dosage: CONTINUES FROM 08:00 TO 22:00 (NOT REPORTED, CONTINOUS FROM 08:00 TO 22:00), SUBCUTANEOUS
     Route: 058
     Dates: start: 20091028

REACTIONS (1)
  - CEREBROVASCULAR ACCIDENT [None]
